FAERS Safety Report 6649609-5 (Version None)
Quarter: 2010Q1

REPORT INFORMATION
  Report Type: 
  Country: None (occurrence: None)
  Receive Date: 20100324
  Receipt Date: 20100324
  Transmission Date: 20100710
  Serious: Yes (Death)
  Sender: FDA-Public Use
  Company Number: None

PATIENT
  Sex: Male
  Weight: 77.3 kg

DRUGS (1)
  1. ENBREL [Suspect]
     Indication: PSORIASIS
     Dosage: 1/WEEK SUBCUTANEOUS
     Route: 058

REACTIONS (3)
  - FEELING COLD [None]
  - PULMONARY EMBOLISM [None]
  - PULMONARY MYCOSIS [None]
